FAERS Safety Report 9183047 (Version 2)
Quarter: 2013Q4

REPORT INFORMATION
  Report Type: Spontaneous
  Country: DE (occurrence: DE)
  Receive Date: 20121031
  Receipt Date: 20131021
  Transmission Date: 20140711
  Serious: Yes (Hospitalization, Other)
  Sender: FDA-Public Use
  Company Number: DE-JNJFOC-20121014440

PATIENT
  Age: 71 Year
  Sex: Male
  Weight: 68 kg

DRUGS (5)
  1. XARELTO [Suspect]
     Indication: CEREBROVASCULAR ACCIDENT PROPHYLAXIS
     Route: 048
     Dates: start: 20120921, end: 20130108
  2. XARELTO [Suspect]
     Indication: ATRIAL FIBRILLATION
     Route: 048
     Dates: start: 20120921, end: 20130108
  3. METOPROLOL [Concomitant]
     Route: 065
  4. VITAMIN B12 [Concomitant]
     Route: 065
  5. FOLIC ACID [Concomitant]
     Route: 065

REACTIONS (1)
  - Embolic cerebral infarction [Unknown]
